FAERS Safety Report 17260164 (Version 1)
Quarter: 2020Q1

REPORT INFORMATION
  Report Type: Report from Study
  Country: ES (occurrence: ES)
  Receive Date: 20200111
  Receipt Date: 20200111
  Transmission Date: 20200409
  Serious: Yes (Hospitalization)
  Sender: FDA-Public Use
  Company Number: ES-TEVA-2020-ES-1166824

PATIENT
  Age: 94 Year
  Sex: Female

DRUGS (7)
  1. OMEPRAZOL 20 MG 28 C?PSULAS [Concomitant]
     Route: 048
  2. DUPHALAC [Concomitant]
     Active Substance: LACTULOSE
     Route: 048
  3. LEVETIRACETAM 500 MG 60 COMPRIMIDOS [Concomitant]
     Route: 048
  4. NOLOTIL [Concomitant]
  5. GALANTAMINA 24 MG 28 CAPSULAS DURAS LIBERACION PROLONGA [Concomitant]
     Route: 048
  6. CLOPIDOGREL 75 MG 28 COMPRIMIDOS [Suspect]
     Active Substance: CLOPIDOGREL BISULFATE
     Indication: TRANSIENT ISCHAEMIC ATTACK
     Dosage: 1 CADA 24 HORAS. 1-0-0.
     Route: 048
     Dates: start: 201101, end: 20180405
  7. PARACETAMOL 1G [Concomitant]
     Active Substance: ACETAMINOPHEN
     Route: 048

REACTIONS (1)
  - Cerebral haemorrhage [Recovered/Resolved with Sequelae]

NARRATIVE: CASE EVENT DATE: 20180406
